FAERS Safety Report 4781064-2 (Version None)
Quarter: 2005Q3

REPORT INFORMATION
  Report Type: 
  Country: None (occurrence: None)
  Receive Date: 20050926
  Receipt Date: 20050914
  Transmission Date: 20060218
  Serious: Yes (Hospitalization, Other)
  Sender: FDA-Public Use
  Company Number: 2005046454

PATIENT
  Age: 65 Year
  Sex: Male

DRUGS (3)
  1. CABERGOLINE [Suspect]
     Indication: PARKINSON'S DISEASE
     Dosage: 3 MG , ORAL
     Route: 048
  2. LEBOCAR (CARBIDOPA, LEVODOPA) [Suspect]
     Indication: PARKINSON'S DISEASE
     Dosage: 300 MG, ORAL
     Route: 048
  3. BENSERAZIDE HYDROCHLORIDE (BENSERAZIDE HYDROCHLORIDE) [Suspect]
     Indication: PARKINSON'S DISEASE
     Dosage: 75 MG , ORAL
     Route: 048

REACTIONS (5)
  - CEREBRAL ATROPHY [None]
  - HALLUCINATION, AUDITORY [None]
  - PERSECUTORY DELUSION [None]
  - PNEUMONIA ASPIRATION [None]
  - SOMATIC HALLUCINATION [None]
